FAERS Safety Report 25110547 (Version 1)
Quarter: 2025Q1

REPORT INFORMATION
  Report Type: Spontaneous
  Country: US (occurrence: US)
  Receive Date: 20250324
  Receipt Date: 20250324
  Transmission Date: 20250409
  Serious: No
  Sender: ROCHE
  Company Number: US-ROCHE-10000237420

PATIENT
  Sex: Female

DRUGS (8)
  1. ACTEMRA ACTPEN [Suspect]
     Active Substance: TOCILIZUMAB
     Indication: Giant cell arteritis
     Route: 058
  2. ATORVASTATIN [Concomitant]
     Active Substance: ATORVASTATIN
  3. CALCIUM [Concomitant]
     Active Substance: CALCIUM
  4. ELIQUIS [Concomitant]
     Active Substance: APIXABAN
  5. JARDIANCE [Concomitant]
     Active Substance: EMPAGLIFLOZIN
  6. METOPROLOL [Concomitant]
     Active Substance: METOPROLOL
  7. OMEPRAZOLE [Concomitant]
     Active Substance: OMEPRAZOLE
  8. SPIRONOLACTO [Concomitant]

REACTIONS (1)
  - Cellulitis [Not Recovered/Not Resolved]
